FAERS Safety Report 23308718 (Version 2)
Quarter: 2023Q4

REPORT INFORMATION
  Report Type: Spontaneous
  Country: GB (occurrence: GB)
  Receive Date: 20231218
  Receipt Date: 20231228
  Transmission Date: 20240110
  Serious: Yes (Death, Hospitalization, Other)
  Sender: FDA-Public Use
  Company Number: None

PATIENT
  Age: 51 Year
  Sex: Male

DRUGS (1)
  1. ZONISAMIDE [Suspect]
     Active Substance: ZONISAMIDE
     Indication: Epilepsy
     Dosage: UNK
     Route: 065
     Dates: start: 201607, end: 201611

REACTIONS (3)
  - Renal cancer [Fatal]
  - Cough [Unknown]
  - Renal impairment [Unknown]

NARRATIVE: CASE EVENT DATE: 20171217
